FAERS Safety Report 6444422-6 (Version None)
Quarter: 2009Q4

REPORT INFORMATION
  Report Type: 
  Country: None (occurrence: None)
  Receive Date: 20091117
  Receipt Date: 20091117
  Transmission Date: 20100525
  Serious: No
  Sender: FDA-Public Use
  Company Number: None

PATIENT
  Age: 54 Year
  Sex: Female
  Weight: 84.6 kg

DRUGS (13)
  1. TAMIFLU [Suspect]
     Indication: INFLUENZA
     Dosage: 75MG BID PO
     Route: 048
     Dates: start: 20090909, end: 20090912
  2. TAMIFLU [Suspect]
     Indication: PROPHYLAXIS
     Dosage: 75MG BID PO
     Route: 048
     Dates: start: 20090909, end: 20090912
  3. MAGNESIUM SULFATE [Concomitant]
  4. POTASSIUM CL [Concomitant]
  5. APAP TAB [Concomitant]
  6. ASPIRIN [Concomitant]
  7. LOVENOX [Concomitant]
  8. GLIPIZIDE [Concomitant]
  9. INSULIN, SLIDING SCALE [Concomitant]
  10. LEVOTHYROXINE [Concomitant]
  11. LISINOPRIL [Concomitant]
  12. OMEPRAZOLE [Concomitant]
  13. TEMAZEPAM [Concomitant]

REACTIONS (1)
  - LIVER FUNCTION TEST ABNORMAL [None]
